FAERS Safety Report 7015671-3 (Version None)
Quarter: 2010Q3

REPORT INFORMATION
  Report Type: 
  Country: None (occurrence: None)
  Receive Date: 20100927
  Receipt Date: 20100913
  Transmission Date: 20110219
  Serious: Yes (Hospitalization)
  Sender: FDA-Public Use
  Company Number: BR-MEDIMMUNE-MEDI-0010929

PATIENT
  Sex: Male
  Weight: 8.6 kg

DRUGS (4)
  1. SYNAGIS [Suspect]
     Route: 030
     Dates: start: 20090609, end: 20090609
  2. SYNAGIS [Suspect]
  3. SYNAGIS [Suspect]
     Indication: BRONCHOPULMONARY DYSPLASIA
  4. LORATADINE [Concomitant]
     Indication: ALLERGY PROPHYLAXIS
     Route: 048

REACTIONS (2)
  - BRONCHIOLITIS [None]
  - BRONCHITIS [None]
